FAERS Safety Report 5859529-1 (Version None)
Quarter: 2008Q3

REPORT INFORMATION
  Report Type: 
  Country: None (occurrence: None)
  Receive Date: 20080827
  Receipt Date: 20080819
  Transmission Date: 20090109
  Serious: Yes (Death)
  Sender: FDA-Public Use
  Company Number: A0743307A

PATIENT
  Sex: Female

DRUGS (1)
  1. TREXIMET [Suspect]
     Indication: HEADACHE
     Route: 048
     Dates: start: 20080814, end: 20080814

REACTIONS (2)
  - ASTHENIA [None]
  - SOMNOLENCE [None]
